FAERS Safety Report 8250048-4 (Version None)
Quarter: 2012Q1

REPORT INFORMATION
  Report Type: 
  Country: None (occurrence: None)
  Receive Date: 20120327
  Receipt Date: 20120320
  Transmission Date: 20120608
  Serious: Yes (Other)
  Sender: FDA-Public Use
  Company Number: 2012SP015507

PATIENT
  Age: 17 Year
  Sex: Female

DRUGS (1)
  1. DESOGESTRE/ETHINYL ESTRADIOL [Suspect]
     Indication: ORAL CONTRACEPTION
     Dosage: 1 DF;QD
     Dates: start: 20110801

REACTIONS (3)
  - POST PROCEDURAL COMPLICATION [None]
  - WISDOM TEETH REMOVAL [None]
  - NEUROMYELITIS OPTICA [None]
